FAERS Safety Report 9411272 (Version 2)
Quarter: 2014Q1

REPORT INFORMATION
  Report Type: Report from Study
  Country: US (occurrence: US)
  Receive Date: 20130722
  Receipt Date: 20140311
  Transmission Date: 20141002
  Serious: Yes (Hospitalization, Other)
  Sender: FDA-Public Use
  Company Number: US-BIOGENIDEC-2013BI062336

PATIENT
  Age: 32 Year
  Sex: Female
  Weight: 102 kg

DRUGS (7)
  1. TYSABRI [Suspect]
     Indication: MULTIPLE SCLEROSIS
     Route: 042
     Dates: start: 20080609
  2. ACETAMINOPHEN [Concomitant]
     Route: 048
  3. AMANTADINE [Concomitant]
     Route: 048
  4. CLARITIN [Concomitant]
     Route: 048
  5. PRIMIDONE [Concomitant]
     Route: 048
  6. VITAMIN B12 [Concomitant]
  7. VITAMIN D3 [Concomitant]
     Route: 048

REACTIONS (1)
  - Abdominal pain [Recovered/Resolved]
